FAERS Safety Report 13306417 (Version 3)
Quarter: 2017Q3

REPORT INFORMATION
  Report Type: Report from Study
  Country: CA (occurrence: CA)
  Receive Date: 20170308
  Receipt Date: 20170817
  Transmission Date: 20171127
  Serious: Yes (Death, Hospitalization, Other)
  Sender: FDA-Public Use
  Company Number: CA-GILEAD-2017-0257623

PATIENT
  Age: 55 Year
  Sex: Female

DRUGS (1)
  1. LEDIPASVIR/SOFOSBUVIR [Suspect]
     Active Substance: LEDIPASVIR\SOFOSBUVIR
     Indication: CHRONIC HEPATITIS C
     Dosage: 1 DF, UNK
     Route: 048
     Dates: start: 20170119

REACTIONS (10)
  - Cardio-respiratory arrest [Fatal]
  - Drug dose omission [Unknown]
  - Incorrect route of drug administration [Unknown]
  - Hepatic neoplasm [Unknown]
  - Head discomfort [Fatal]
  - Dizziness [Fatal]
  - Headache [Fatal]
  - Nasopharyngitis [Unknown]
  - Wrong technique in product usage process [Unknown]
  - Speech disorder [Unknown]
